FAERS Safety Report 7719576-1 (Version None)
Quarter: 2011Q3

REPORT INFORMATION
  Report Type: 
  Country: None (occurrence: None)
  Receive Date: 20110830
  Receipt Date: 20110815
  Transmission Date: 20111222
  Serious: Yes (Disabling, Other)
  Sender: FDA-Public Use
  Company Number: US-BAXTER-2009BH018706

PATIENT
  Age: 56 Year
  Sex: Female
  Weight: 65 kg

DRUGS (5)
  1. HEPARIN SODIUM INJECTION [Suspect]
     Route: 042
     Dates: start: 20071127, end: 20071127
  2. HEPARIN SODIUM 5,000 UNITS IN DEXTROSE 5% [Suspect]
     Route: 042
     Dates: start: 20071127, end: 20071127
  3. HEPARIN SODIUM INJECTION [Suspect]
     Route: 042
     Dates: start: 20071127, end: 20071127
  4. HEPARIN SODIUM 5,000 UNITS IN DEXTROSE 5% [Suspect]
     Indication: PRODUCT USED FOR UNKNOWN INDICATION
     Route: 042
     Dates: start: 20071127, end: 20071127
  5. HEPARIN SODIUM INJECTION [Suspect]
     Indication: ANTICOAGULANT THERAPY
     Route: 065
     Dates: start: 20071126, end: 20071127

REACTIONS (13)
  - NAUSEA [None]
  - HAEMORRHAGE [None]
  - UTERINE LEIOMYOMA [None]
  - FATIGUE [None]
  - HYPOKALAEMIA [None]
  - HAEMATOCHEZIA [None]
  - DRUG INEFFECTIVE [None]
  - HEPARIN-INDUCED THROMBOCYTOPENIA [None]
  - PAIN IN EXTREMITY [None]
  - DYSPNOEA [None]
  - THROMBOSIS [None]
  - TACHYCARDIA [None]
  - MUSCULOSKELETAL STIFFNESS [None]
